FAERS Safety Report 5893053-5 (Version None)
Quarter: 2008Q3

REPORT INFORMATION
  Report Type: 
  Country: None (occurrence: None)
  Receive Date: 20080923
  Receipt Date: 20080723
  Transmission Date: 20090109
  Serious: Yes (Hospitalization, Other)
  Sender: FDA-Public Use
  Company Number: US-ASTRAZENECA-2006UW24132

PATIENT
  Age: 17197 Day
  Sex: Female

DRUGS (5)
  1. SEROQUEL [Suspect]
     Route: 048
     Dates: start: 20010101, end: 20060101
  2. ZYPREXA [Concomitant]
     Dates: end: 20010101
  3. EFFEXOR [Concomitant]
  4. TRAZODONE HCL [Concomitant]
  5. KLONOPIN [Concomitant]

REACTIONS (5)
  - BLOOD GLUCOSE DECREASED [None]
  - DIABETES MELLITUS [None]
  - DIABETIC COMA [None]
  - KETOACIDOSIS [None]
  - SYNCOPE [None]
